FAERS Safety Report 4613206-3 (Version None)
Quarter: 2005Q1

REPORT INFORMATION
  Report Type: 
  Country: None (occurrence: None)
  Receive Date: 20050315
  Receipt Date: 20050302
  Transmission Date: 20050727
  Serious: Yes (Life-Threatening, Hospitalization)
  Sender: FDA-Public Use
  Company Number: 2005020730

PATIENT
  Age: 33 Year
  Sex: Male
  Weight: 67 kg

DRUGS (2)
  1. ZELDOX (CAPSULES) (ZIPRASIDONE) [Suspect]
     Indication: DEPRESSION
     Dosage: 80 MG, ORAL
     Route: 048
     Dates: start: 20040722, end: 20040804
  2. OLANZAPINE [Concomitant]

REACTIONS (4)
  - ATRIOVENTRICULAR BLOCK [None]
  - DYSPNOEA [None]
  - HEART RATE DECREASED [None]
  - LEFT VENTRICULAR FAILURE [None]
